FAERS Safety Report 24769096 (Version 1)
Quarter: 2024Q4

REPORT INFORMATION
  Report Type: Spontaneous
  Country: JP (occurrence: JP)
  Receive Date: 20241224
  Receipt Date: 20241224
  Transmission Date: 20250115
  Serious: Yes (Other)
  Sender: AMGEN
  Company Number: JP-KYOWAKIRIN-2024KK027901

PATIENT

DRUGS (1)
  1. CINACALCET HYDROCHLORIDE [Suspect]
     Active Substance: CINACALCET HYDROCHLORIDE
     Indication: Hypercalcaemia
     Dosage: 25 MILLIGRAM, BID(2 TABLETS OF REGPARA TABLETS 25MG IN 2 DIVIDED DOSES)
     Route: 065

REACTIONS (3)
  - Gastric fistula [Unknown]
  - Wrong technique in product usage process [Unknown]
  - Off label use [Unknown]
